FAERS Safety Report 6067112-0 (Version None)
Quarter: 2009Q1

REPORT INFORMATION
  Report Type: 
  Country: None (occurrence: None)
  Receive Date: 20090203
  Receipt Date: 20090120
  Transmission Date: 20090719
  Serious: No
  Sender: FDA-Public Use
  Company Number: 231643K08USA

PATIENT
  Age: 37 Year
  Sex: Female

DRUGS (2)
  1. REBIF [Suspect]
     Indication: MULTIPLE SCLEROSIS
     Dosage: 44 MCG, 3 IN 1 WEEKS, SUBCUTANEOUS
     Route: 058
     Dates: start: 20081009
  2. LISINOPRIL AND HYDROCHLOROTHIAZIDE (PRINZIDE /00977901/) [Concomitant]

REACTIONS (9)
  - FATIGUE [None]
  - FEELING HOT [None]
  - HEADACHE [None]
  - HEPATIC ENZYME INCREASED [None]
  - INCREASED UPPER AIRWAY SECRETION [None]
  - INJECTION SITE HAEMATOMA [None]
  - NAUSEA [None]
  - NIGHT BLINDNESS [None]
  - PAIN [None]
